FAERS Safety Report 6207522-1 (Version None)
Quarter: 2009Q2

REPORT INFORMATION
  Report Type: 
  Country: None (occurrence: None)
  Receive Date: 20090526
  Receipt Date: 20090511
  Transmission Date: 20091009
  Serious: Yes (Death)
  Sender: FDA-Public Use
  Company Number: 1000005088

PATIENT
  Age: 61 Year
  Sex: Male
  Weight: 82 kg

DRUGS (2)
  1. ESCITALOPRAM [Suspect]
     Indication: DEPRESSION
     Dosage: 10 MG 910 MG, 1 IN 1 D), ORAL
     Route: 048
     Dates: start: 20080101, end: 20080101
  2. ADALAT CC [Concomitant]

REACTIONS (3)
  - COMPLETED SUICIDE [None]
  - DELUSION [None]
  - INSOMNIA [None]
